FAERS Safety Report 9971513 (Version 1)
Quarter: 2014Q1

REPORT INFORMATION
  Report Type: Report from Study
  Country: US (occurrence: US)
  Receive Date: 20140306
  Receipt Date: 20140306
  Transmission Date: 20141002
  Serious: No
  Sender: FDA-Public Use
  Company Number: US-ABBVIE-13P-163-1148072-00

PATIENT
  Sex: Female
  Weight: 108.96 kg

DRUGS (15)
  1. HUMIRA [Suspect]
     Indication: RHEUMATOID ARTHRITIS
     Dates: start: 2013
  2. HUMIRA [Suspect]
     Indication: CROHN^S DISEASE
  3. LEVOCETIRIZINE DIHYDROCHLORIDE [Concomitant]
     Indication: PRODUCT USED FOR UNKNOWN INDICATION
  4. GABAPENTIN [Concomitant]
     Indication: NEUROPATHY PERIPHERAL
  5. DELZICOL ER [Concomitant]
     Indication: CROHN^S DISEASE
  6. NASONEX [Concomitant]
     Indication: SINUS DISORDER
  7. QUESTRAN [Concomitant]
     Indication: DIARRHOEA
  8. METHOTREXATE [Concomitant]
     Indication: RHEUMATOID ARTHRITIS
  9. MONTELUKAST [Concomitant]
     Indication: PRODUCT USED FOR UNKNOWN INDICATION
  10. CITALOPRAM [Concomitant]
     Indication: PRODUCT USED FOR UNKNOWN INDICATION
  11. NEXIUM [Concomitant]
     Indication: CROHN^S DISEASE
  12. CELECOXIB [Concomitant]
     Indication: OSTEOARTHRITIS
  13. CRESTOR [Concomitant]
     Indication: BLOOD CHOLESTEROL INCREASED
  14. FOLIC ACID [Concomitant]
     Indication: RHEUMATOID ARTHRITIS
  15. HYZAAR [Concomitant]
     Indication: HYPERTENSION

REACTIONS (2)
  - Device malfunction [Unknown]
  - Injection site pain [Not Recovered/Not Resolved]
